FAERS Safety Report 15306762 (Version 1)
Quarter: 2018Q3

REPORT INFORMATION
  Report Type: Report from Study
  Country: None (occurrence: US)
  Receive Date: 20180822
  Receipt Date: 20180822
  Transmission Date: 20181010
  Serious: No
  Sender: FDA-Public Use
  Company Number: US-BIOVITRUM-2017US0535

PATIENT
  Age: 3 Year
  Sex: Male

DRUGS (1)
  1. ORFADIN [Suspect]
     Active Substance: NITISINONE

REACTIONS (4)
  - Adenoidectomy [Unknown]
  - Haemoglobin decreased [Unknown]
  - Ear tube insertion [Unknown]
  - Attention deficit/hyperactivity disorder [Unknown]
